FAERS Safety Report 8573929-0 (Version None)
Quarter: 2012Q3

REPORT INFORMATION
  Report Type: 
  Country: None (occurrence: None)
  Receive Date: 20120806
  Receipt Date: 20120727
  Transmission Date: 20120928
  Serious: Yes (Hospitalization)
  Sender: FDA-Public Use
  Company Number: JP-VERTEX PHARMACEUTICALS INC.-AE-2012-011233

PATIENT
  Age: 64 Year
  Sex: Female

DRUGS (10)
  1. PEG-INTRON [Concomitant]
     Route: 058
  2. TELAVIC (TELAPREVIR) [Suspect]
     Indication: HEPATITIS C
     Route: 048
     Dates: start: 20120517, end: 20120525
  3. GASMOTIN [Concomitant]
     Route: 048
     Dates: start: 20120517
  4. NIZATIDINE [Concomitant]
     Route: 048
     Dates: start: 20120517
  5. REBETOL [Concomitant]
     Indication: HEPATITIS C
     Route: 048
     Dates: start: 20120613, end: 20120614
  6. TELAVIC (TELAPREVIR) [Suspect]
     Route: 048
  7. REBETOL [Concomitant]
     Route: 048
     Dates: start: 20120628
  8. REBETOL [Concomitant]
     Route: 048
  9. TELAVIC (TELAPREVIR) [Suspect]
     Route: 048
     Dates: start: 20120718
  10. MOTILIUM [Concomitant]
     Route: 048
     Dates: start: 20120517

REACTIONS (2)
  - DECREASED APPETITE [None]
  - DRUG ERUPTION [None]
